FAERS Safety Report 17316963 (Version 3)
Quarter: 2020Q3

REPORT INFORMATION
  Report Type: Spontaneous
  Country: US (occurrence: US)
  Receive Date: 20200124
  Receipt Date: 20200720
  Transmission Date: 20201102
  Serious: Yes (Hospitalization, Other)
  Sender: FDA-Public Use
  Company Number: US-ASTRAZENECA-2020SE09104

PATIENT
  Age: 20667 Day
  Sex: Male
  Weight: 93 kg

DRUGS (64)
  1. FARXIGA [Suspect]
     Active Substance: DAPAGLIFLOZIN PROPANEDIOL
     Indication: BLOOD PRESSURE ABNORMAL
     Dosage: 5.0MG UNKNOWN
     Route: 048
     Dates: start: 20170419
  2. RELION [Concomitant]
     Dates: start: 20140728
  3. ZOSYN [Concomitant]
     Active Substance: PIPERACILLIN SODIUM\TAZOBACTAM SODIUM
  4. SODIUM CHLORIDE. [Concomitant]
     Active Substance: SODIUM CHLORIDE
  5. FARXIGA [Suspect]
     Active Substance: DAPAGLIFLOZIN PROPANEDIOL
     Indication: TYPE 2 DIABETES MELLITUS
     Route: 048
     Dates: start: 20170430, end: 20180121
  6. FARXIGA [Suspect]
     Active Substance: DAPAGLIFLOZIN PROPANEDIOL
     Indication: TYPE 2 DIABETES MELLITUS
     Dosage: 5.0MG UNKNOWN
     Route: 048
     Dates: start: 20170419
  7. FARXIGA [Suspect]
     Active Substance: DAPAGLIFLOZIN PROPANEDIOL
     Indication: WEIGHT DECREASED
     Dosage: 5.0MG UNKNOWN
     Route: 048
     Dates: start: 20170419
  8. SMZ/TMP [Concomitant]
     Active Substance: SULFAMETHOXAZOLE\TRIMETHOPRIM
     Dosage: 800?160
     Route: 048
     Dates: start: 20140415
  9. DEXTROSE. [Concomitant]
     Active Substance: DEXTROSE
  10. NARCAN [Concomitant]
     Active Substance: NALOXONE HYDROCHLORIDE
  11. SINEMET [Concomitant]
     Active Substance: CARBIDOPA\LEVODOPA
  12. ESCITALOPRAM [Concomitant]
     Active Substance: ESCITALOPRAM OXALATE
  13. PLENVU [Concomitant]
     Active Substance: ASCORBIC ACID\POLYETHYLENE GLYCOL 3350\POTASSIUM CHLORIDE\SODIUM ASCORBATE\SODIUM CHLORIDE\SODIUM SULFATE
     Dates: start: 20181119
  14. BYDUREON [Concomitant]
     Active Substance: EXENATIDE
     Dosage: 1000 MC INJ
     Dates: start: 20150911
  15. CLINDA [Concomitant]
     Active Substance: CLINDAMYCIN HYDROCHLORIDE
  16. BISACODYL. [Concomitant]
     Active Substance: BISACODYL
  17. PIOGLITAZONE. [Concomitant]
     Active Substance: PIOGLITAZONE
  18. FOSAMAX [Concomitant]
     Active Substance: ALENDRONATE SODIUM
  19. HUMALOG [Concomitant]
     Active Substance: INSULIN LISPRO
     Dosage: 100 UNIT/ML INJ
     Dates: start: 20180118
  20. BASAGLAR [Concomitant]
     Active Substance: INSULIN GLARGINE
     Dosage: 100 UNIT INJ
     Dates: start: 20180516
  21. NOVOLOG [Concomitant]
     Active Substance: INSULIN ASPART
     Dosage: 100 UNIT/ ML INJ
     Dates: start: 20180703
  22. POLYETHYLENE GLYCOL [Concomitant]
     Active Substance: POLYETHYLENE GLYCOLS
     Dosage: 3350 ELECTROL SOL
     Dates: start: 20181104
  23. CYANOCOBALAM [Concomitant]
     Active Substance: CYANOCOBALAMIN
     Dosage: 1000 MC INJ
     Dates: start: 20140911
  24. SENNOSIDES?DOCUSATE SODIUM [Concomitant]
     Active Substance: DOCUSATE SODIUM\SENNOSIDES
  25. FLORANEX [Concomitant]
     Active Substance: LACTOBACILLUS ACIDOPHILUS\LACTOBACILLUS DELBRUECKII SUBSP. BULGARICUS
  26. PERCOCET [Concomitant]
     Active Substance: ACETAMINOPHEN\OXYCODONE HYDROCHLORIDE
  27. MOTRIN [Concomitant]
     Active Substance: IBUPROFEN
  28. GLIMEPIRIDE. [Concomitant]
     Active Substance: GLIMEPIRIDE
     Dosage: 2.0MG UNKNOWN
     Route: 048
     Dates: start: 20140114
  29. VANCOMYCIN [Concomitant]
     Active Substance: VANCOMYCIN
     Dosage: 125.0MG UNKNOWN
     Route: 048
     Dates: start: 20180731
  30. CIALIS [Concomitant]
     Active Substance: TADALAFIL
     Dosage: 20.0MG UNKNOWN
     Route: 048
     Dates: start: 20170207
  31. LEVODOPA [Concomitant]
     Active Substance: LEVODOPA
  32. ROXICODONE [Concomitant]
     Active Substance: OXYCODONE HYDROCHLORIDE
  33. ONDANSETRON [Concomitant]
     Active Substance: ONDANSETRON
     Dosage: 4.0MG UNKNOWN
     Route: 048
     Dates: start: 20180114
  34. METFORMIN [Concomitant]
     Active Substance: METFORMIN HYDROCHLORIDE
     Dosage: 1000.0MG UNKNOWN
     Route: 048
     Dates: start: 20180516
  35. LOVENOX [Concomitant]
     Active Substance: ENOXAPARIN SODIUM
  36. VITAMIN C [Concomitant]
     Active Substance: ASCORBIC ACID
  37. FARXIGA [Suspect]
     Active Substance: DAPAGLIFLOZIN PROPANEDIOL
     Indication: WEIGHT DECREASED
     Route: 048
     Dates: start: 20170430, end: 20180121
  38. ESCITALOPRAM [Concomitant]
     Active Substance: ESCITALOPRAM OXALATE
     Dosage: 20.0MG UNKNOWN
     Route: 048
     Dates: start: 20180516
  39. JANUVIA [Concomitant]
     Active Substance: SITAGLIPTIN PHOSPHATE
     Dosage: 100.0MG UNKNOWN
     Route: 048
     Dates: start: 20180516
  40. ENOXAPARIN [Concomitant]
     Active Substance: ENOXAPARIN
     Dosage: 40 MG/0.4 ML INJ
     Dates: start: 20180611
  41. ALENDRONATE [Concomitant]
     Active Substance: ALENDRONATE SODIUM
     Dosage: 70.0MG UNKNOWN
     Route: 048
     Dates: start: 20180730
  42. LANTUS [Concomitant]
     Active Substance: INSULIN GLARGINE
     Dosage: INJ
     Dates: start: 20140307
  43. SIMVASTATIN. [Concomitant]
     Active Substance: SIMVASTATIN
     Dosage: 20.0MG UNKNOWN
     Route: 048
     Dates: start: 20140715
  44. MAGNESIUM HYDROXIDE. [Concomitant]
     Active Substance: MAGNESIUM HYDROXIDE
  45. HEPARIN [Concomitant]
     Active Substance: HEPARIN SODIUM
  46. ZINCATE [Concomitant]
  47. FENTANYL. [Concomitant]
     Active Substance: FENTANYL
  48. HYDROXYZINE [Concomitant]
     Active Substance: HYDROXYZINE HYDROCHLORIDE
  49. LISINOPRIL. [Concomitant]
     Active Substance: LISINOPRIL
  50. DEXCOM [Concomitant]
     Dosage: 4.0MG UNKNOWN
     Route: 048
     Dates: start: 20180114
  51. AUGMENTIN [Concomitant]
     Active Substance: AMOXICILLIN\CLAVULANATE POTASSIUM
  52. FARXIGA [Suspect]
     Active Substance: DAPAGLIFLOZIN PROPANEDIOL
     Indication: BLOOD PRESSURE ABNORMAL
     Route: 048
     Dates: start: 20170430, end: 20180121
  53. TAMSULOSIN [Concomitant]
     Active Substance: TAMSULOSIN
     Dosage: 0.4MG UNKNOWN
     Route: 048
     Dates: start: 20180430
  54. CYCLOBENZPR [Concomitant]
     Dates: start: 20180616
  55. OXYCODONE/ACETAMINOPHEN [Concomitant]
     Active Substance: ACETAMINOPHEN\OXYCODONE HYDROCHLORIDE
     Dosage: 325.0MG UNKNOWN
     Route: 048
     Dates: start: 20180619
  56. TRAZODONE [Concomitant]
     Active Substance: TRAZODONE HYDROCHLORIDE
     Dosage: 50.0MG UNKNOWN
     Route: 048
     Dates: start: 20181025
  57. PIOGLITAZONE. [Concomitant]
     Active Substance: PIOGLITAZONE
     Dosage: 30.0MG UNKNOWN
     Route: 048
     Dates: start: 20150911
  58. CARBIDOPA. [Concomitant]
     Active Substance: CARBIDOPA
  59. CEFUROXIME AXETIL. [Concomitant]
     Active Substance: CEFUROXIME AXETIL
  60. ACETAMINOPHEN. [Concomitant]
     Active Substance: ACETAMINOPHEN
  61. CARBIDOPA?IEVODOPA [Concomitant]
  62. LACTOBACILLUS ACIDOPHILUS [Concomitant]
     Active Substance: LACTOBACILLUS ACIDOPHILUS
  63. IOPAMIDOL [Concomitant]
     Active Substance: IOPAMIDOL
  64. DULAGLUTIDE. [Concomitant]
     Active Substance: DULAGLUTIDE
     Dosage: 2.0MG UNKNOWN
     Route: 048
     Dates: start: 20140114

REACTIONS (4)
  - Sepsis [Unknown]
  - Fournier^s gangrene [Unknown]
  - Subcutaneous abscess [Unknown]
  - Necrotising fasciitis [Unknown]

NARRATIVE: CASE EVENT DATE: 20180120
